FAERS Safety Report 10509938 (Version 1)
Quarter: 2014Q4

REPORT INFORMATION
  Report Type: Report from Study
  Country: US (occurrence: US)
  Receive Date: 20141010
  Receipt Date: 20141010
  Transmission Date: 20150528
  Serious: Yes (Hospitalization, Other)
  Sender: FDA-Public Use
  Company Number: US-JNJFOC-20140925491

PATIENT
  Age: 82 Year
  Sex: Male
  Weight: 90.72 kg

DRUGS (12)
  1. PROSTENE [Concomitant]
     Route: 065
  2. PREDNISONE. [Concomitant]
     Active Substance: PREDNISONE
     Indication: ADVERSE DRUG REACTION
     Route: 065
  3. SIMVASTATIN. [Concomitant]
     Active Substance: SIMVASTATIN
     Indication: BLOOD CHOLESTEROL
     Route: 065
  4. XGEVA [Concomitant]
     Active Substance: DENOSUMAB
     Indication: BONE DISORDER
  5. DOCUSATE SODIUM. [Concomitant]
     Active Substance: DOCUSATE SODIUM
  6. CALCIUM [Concomitant]
     Active Substance: CALCIUM
     Route: 065
  7. LORATADINE. [Concomitant]
     Active Substance: LORATADINE
     Indication: MULTIPLE ALLERGIES
     Route: 065
  8. LEVOTHYROXINE [Concomitant]
     Active Substance: LEVOTHYROXINE
     Indication: PHARYNGITIS
  9. UBIQUINON [Concomitant]
     Indication: CARDIAC DISORDER
     Route: 065
  10. MYRBETRIQ [Concomitant]
     Active Substance: MIRABEGRON
     Indication: MUSCLE SPASMS
     Route: 065
  11. ZYTIGA [Suspect]
     Active Substance: ABIRATERONE ACETATE
     Indication: PROSTATE CANCER METASTATIC
     Route: 048
     Dates: start: 20140322
  12. BICALUTAMIDE. [Concomitant]
     Active Substance: BICALUTAMIDE

REACTIONS (13)
  - Confusional state [Not Recovered/Not Resolved]
  - Cachexia [Not Recovered/Not Resolved]
  - Penile haemorrhage [Recovered/Resolved]
  - Cystostomy [Unknown]
  - Bladder catheterisation [Unknown]
  - Oedema peripheral [Not Recovered/Not Resolved]
  - Cough [Unknown]
  - Fall [Recovered/Resolved]
  - Haemoglobin decreased [Unknown]
  - Diarrhoea [Unknown]
  - Nephrostomy [Unknown]
  - Staphylococcal infection [Unknown]
  - Drug ineffective [Unknown]

NARRATIVE: CASE EVENT DATE: 2014
